FAERS Safety Report 26136436 (Version 1)
Quarter: 2025Q4

REPORT INFORMATION
  Report Type: Spontaneous
  Country: US (occurrence: US)
  Receive Date: 20251209
  Receipt Date: 20251209
  Transmission Date: 20260118
  Serious: Yes (Other)
  Sender: DR REDDYS
  Company Number: None

PATIENT
  Sex: Male

DRUGS (4)
  1. CLOZAPINE [Suspect]
     Active Substance: CLOZAPINE
     Indication: Psychiatric care
  2. RISPERIDONE [Concomitant]
     Active Substance: RISPERIDONE
     Indication: Psychiatric care
     Dosage: LONG-ACTING INJECTABLE
  3. VALPROIC ACID [Concomitant]
     Active Substance: VALPROIC ACID
     Indication: Paranoia
     Dosage: 1500 MG DAILY, WHICH HAD BEEN TITRATED OVER YEARS
  4. VALPROIC ACID [Concomitant]
     Active Substance: VALPROIC ACID
     Indication: Aggression

REACTIONS (1)
  - Pulmonary hypertension [Unknown]
